FAERS Safety Report 10454391 (Version 3)
Quarter: 2015Q2

REPORT INFORMATION
  Report Type: Spontaneous
  Country: US (occurrence: US)
  Receive Date: 20140915
  Receipt Date: 20150605
  Transmission Date: 20150821
  Serious: Yes (Disabling, Congenital Anomaly, Other)
  Sender: FDA-Public Use
  Company Number: US-PFIZER INC-2014252446

PATIENT
  Sex: Male

DRUGS (19)
  1. TERBUTALINE [Concomitant]
     Active Substance: TERBUTALINE
     Indication: TOCOLYSIS
     Dosage: UNK, DAILY
     Route: 064
     Dates: start: 200810
  2. EFFEXOR [Suspect]
     Active Substance: VENLAFAXINE HYDROCHLORIDE
     Indication: DEPRESSION
     Dosage: 75 MG, DAILY
     Route: 064
     Dates: start: 20080211, end: 20080507
  3. VENLAFAXINE HCL [Suspect]
     Active Substance: VENLAFAXINE HYDROCHLORIDE
     Indication: DEPRESSION
     Dosage: 75 MG, DAILY
     Route: 064
     Dates: start: 20080211, end: 20080507
  4. SERTRALINE HCL [Suspect]
     Active Substance: SERTRALINE HYDROCHLORIDE
     Indication: DEPRESSION
     Dosage: 75 MG/100 MG, DAILY
     Route: 064
     Dates: start: 200805, end: 200811
  5. SERTRALINE HCL [Suspect]
     Active Substance: SERTRALINE HYDROCHLORIDE
     Dosage: 75 MG, DAILY
     Route: 064
     Dates: start: 20080820
  6. SERTRALINE HCL [Suspect]
     Active Substance: SERTRALINE HYDROCHLORIDE
     Dosage: 100 MG, DAILY
     Route: 064
     Dates: end: 20081025
  7. ZOLOFT [Suspect]
     Active Substance: SERTRALINE HYDROCHLORIDE
     Indication: DEPRESSION
     Dosage: 75 MG, DAILY
     Route: 064
     Dates: start: 20080507, end: 20080820
  8. FERROUS SULFATE [Concomitant]
     Active Substance: FERROUS SULFATE\FERROUS SULFATE, DRIED
     Indication: MINERAL SUPPLEMENTATION
     Dosage: 325 MG, DAILY
     Route: 064
     Dates: start: 200809
  9. MAGNESIUM SULFATE. [Concomitant]
     Active Substance: MAGNESIUM SULFATE
     Indication: TOCOLYSIS
     Dosage: UNK, DAILY
     Route: 064
     Dates: start: 200810
  10. VENLAFAXINE HCL [Suspect]
     Active Substance: VENLAFAXINE HYDROCHLORIDE
     Dosage: UNK
     Route: 064
  11. TRAZODONE [Concomitant]
     Active Substance: TRAZODONE HYDROCHLORIDE
     Indication: DEPRESSION
     Dosage: 50 MG, DAILY
     Route: 064
     Dates: start: 200804
  12. METRONIDAZOLE. [Concomitant]
     Active Substance: METRONIDAZOLE
     Dosage: 250 MG, DAILY
     Route: 064
     Dates: start: 200807
  13. EFFEXOR XR [Concomitant]
     Active Substance: VENLAFAXINE HYDROCHLORIDE
     Dosage: UNK
     Route: 064
  14. NIFEDIPINE. [Concomitant]
     Active Substance: NIFEDIPINE
     Indication: TOCOLYSIS
     Dosage: UNK, DAILY
     Route: 064
     Dates: start: 200810
  15. IBUPROFEN. [Concomitant]
     Active Substance: IBUPROFEN
     Dosage: UNK
     Route: 064
  16. PRENATAL VITAMINS [Concomitant]
     Active Substance: VITAMINS
     Indication: PREGNANCY
     Dosage: UNK
     Route: 064
     Dates: start: 200802, end: 200811
  17. PROCARDIA [Concomitant]
     Active Substance: NIFEDIPINE
     Indication: TOCOLYSIS
     Dosage: UNK, DAILY
     Route: 064
     Dates: start: 200810
  18. ZOLOFT [Suspect]
     Active Substance: SERTRALINE HYDROCHLORIDE
     Dosage: 75 MG/100 MG, DAILY
     Route: 064
     Dates: start: 200805, end: 200811
  19. CEPHALEXIN. [Concomitant]
     Active Substance: CEPHALEXIN
     Indication: URINARY TRACT INFECTION
     Dosage: 500 MG, DAILY
     Route: 064
     Dates: start: 200806

REACTIONS (19)
  - Maternal exposure during pregnancy [Unknown]
  - Ventricular septal defect [Unknown]
  - Congenital aortic anomaly [Unknown]
  - Patent ductus arteriosus [Unknown]
  - Pulmonary artery stenosis congenital [Unknown]
  - Fallot^s tetralogy [Unknown]
  - Congenital aortic dilatation [Unknown]
  - Cardiac murmur [Unknown]
  - Atrial septal defect [Unknown]
  - Pulmonary artery stenosis congenital [Unknown]
  - Congenital pulmonary valve disorder [Unknown]
  - Atrial septal defect [Unknown]
  - Dacryostenosis congenital [Unknown]
  - Congenital anomaly [Unknown]
  - Right ventricular hypertrophy [Unknown]
  - Pulmonary vascular disorder [Unknown]
  - Pulmonary valve stenosis congenital [Unknown]
  - Congenital arterial malformation [Unknown]
  - Congenital tricuspid valve incompetence [Unknown]

NARRATIVE: CASE EVENT DATE: 20081029
